FAERS Safety Report 4455498-X (Version None)
Quarter: 2004Q3

REPORT INFORMATION
  Report Type: 
  Country: None (occurrence: None)
  Receive Date: 20040917
  Receipt Date: 20040907
  Transmission Date: 20050211
  Serious: Yes (Other)
  Sender: FDA-Public Use
  Company Number: HQWYE875408SEP04

PATIENT
  Age: 72 Year
  Sex: Female
  Weight: 81.72 kg

DRUGS (5)
  1. PROTONIX [Suspect]
     Dosage: 40 MG 1X PER DAY, ORAL
     Route: 048
     Dates: start: 20040901, end: 20040903
  2. DIOVAN [Concomitant]
  3. AVANDIA (ROSIGLITZONE MALEATE) [Concomitant]
  4. TOPROL-XL [Concomitant]
  5. ACETYLSALICYLIC ACID ENTERIC COATED (ACETYLSALICYLIC ACID) [Concomitant]

REACTIONS (3)
  - DRUG HYPERSENSITIVITY [None]
  - DYSPNOEA [None]
  - OROPHARYNGEAL SWELLING [None]
